FAERS Safety Report 21578556 (Version 1)
Quarter: 2022Q4

REPORT INFORMATION
  Report Type: Report from Study
  Country: US (occurrence: US)
  Receive Date: 20221110
  Receipt Date: 20221110
  Transmission Date: 20230113
  Serious: No
  Sender: FDA-Public Use
  Company Number: US-ABBVIE-4160598

PATIENT
  Sex: Male
  Weight: 93.893 kg

DRUGS (1)
  1. RINVOQ [Suspect]
     Active Substance: UPADACITINIB
     Indication: Rheumatoid arthritis
     Dosage: 15 MG STRENGTH
     Route: 048
     Dates: start: 2021

REACTIONS (2)
  - Illness [Unknown]
  - Joint stiffness [Unknown]
